FAERS Safety Report 9442845 (Version 2)
Quarter: 2013Q3

REPORT INFORMATION
  Report Type: Report from Study
  Country: US (occurrence: US)
  Receive Date: 20130806
  Receipt Date: 20130821
  Transmission Date: 20140515
  Serious: Yes (Hospitalization)
  Sender: FDA-Public Use
  Company Number: US-ABBOTT-13P-163-1127283-00

PATIENT
  Age: 23 Year
  Sex: Female
  Weight: 64.3 kg

DRUGS (2)
  1. HUMIRA [Suspect]
     Indication: CROHN^S DISEASE
     Dosage: SATURDAYS
     Route: 058
     Dates: start: 201306, end: 20130718
  2. IMURAN [Concomitant]
     Indication: CROHN^S DISEASE
     Route: 048
     Dates: start: 201303

REACTIONS (1)
  - Intestinal perforation [Recovering/Resolving]
